FAERS Safety Report 4307842-1 (Version None)
Quarter: 2004Q1

REPORT INFORMATION
  Report Type: 
  Country: None (occurrence: None)
  Receive Date: 20040225
  Receipt Date: 20030228
  Transmission Date: 20041129
  Serious: Yes (Disabling, Other)
  Sender: FDA-Public Use
  Company Number: WAES 0303USA00049

PATIENT
  Age: 82 Year
  Sex: Female
  Weight: 59.8748 kg

DRUGS (3)
  1. ZOCOR [Suspect]
     Indication: BLOOD CHOLESTEROL INCREASED
     Dosage: 20 MG/HS/PO
     Route: 048
     Dates: start: 20010401, end: 20010101
  2. ZOCOR [Suspect]
     Indication: BLOOD CHOLESTEROL INCREASED
     Dosage: 20 MG/HS/PO
     Route: 048
     Dates: start: 20020101, end: 20020201
  3. . [Concomitant]

REACTIONS (1)
  - MUSCULAR WEAKNESS [None]
